FAERS Safety Report 6298517-0 (Version None)
Quarter: 2009Q3

REPORT INFORMATION
  Report Type: 
  Country: None (occurrence: None)
  Receive Date: 20090805
  Receipt Date: 20090803
  Transmission Date: 20100115
  Serious: Yes (Death, Hospitalization, Other)
  Sender: FDA-Public Use
  Company Number: US-MERCK-0907USA03694

PATIENT
  Sex: Female

DRUGS (1)
  1. ZOCOR [Suspect]
     Indication: HYPERLIPIDAEMIA
     Route: 048
     Dates: start: 19990101

REACTIONS (2)
  - RENAL FAILURE ACUTE [None]
  - RHABDOMYOLYSIS [None]
